FAERS Safety Report 8064256 (Version 7)
Quarter: 2013Q2

REPORT INFORMATION
  Report Type: Report from Study
  Country: MY (occurrence: MY)
  Receive Date: 20110802
  Receipt Date: 20130528
  Transmission Date: 20140414
  Serious: Yes (Hospitalization)
  Sender: FDA-Public Use
  Company Number: MY-JNJFOC-20110712290

PATIENT
  Age: 48 Year
  Sex: Male
  Weight: 56 kg

DRUGS (5)
  1. PALIPERIDONE PALMITATE [Suspect]
     Indication: SCHIZOPHRENIA
     Route: 030
     Dates: start: 20101227
  2. PALIPERIDONE PALMITATE [Suspect]
     Indication: SCHIZOPHRENIA
     Route: 030
     Dates: start: 20110704, end: 20110704
  3. PALIPERIDONE PALMITATE [Suspect]
     Indication: SCHIZOPHRENIA
     Route: 030
     Dates: start: 20110602, end: 20110602
  4. ARTANE [Concomitant]
     Indication: SALIVARY HYPERSECRETION
     Dates: start: 20110307, end: 20121203
  5. LORAZEPAM [Concomitant]
     Indication: SALIVARY HYPERSECRETION
     Dates: start: 20110704, end: 20110708

REACTIONS (1)
  - Psychotic disorder [Not Recovered/Not Resolved]
